FAERS Safety Report 5066673-8 (Version None)
Quarter: 2006Q3

REPORT INFORMATION
  Report Type: 
  Country: None (occurrence: None)
  Receive Date: 20060801
  Receipt Date: 20060419
  Transmission Date: 20061208
  Serious: Yes (Other)
  Sender: FDA-Public Use
  Company Number: US-GLAXOSMITHKLINE-A0602472A

PATIENT
  Sex: Female
  Weight: 85.5 kg

DRUGS (1)
  1. VALTREX [Suspect]
     Route: 048
     Dates: start: 20040101, end: 20060201

REACTIONS (2)
  - FAECAL INCONTINENCE [None]
  - GASTROINTESTINAL PAIN [None]
